FAERS Safety Report 9924400 (Version 4)
Quarter: 2014Q1

REPORT INFORMATION
  Report Type: Spontaneous
  Country: DE (occurrence: DE)
  Receive Date: 20140226
  Receipt Date: 20140331
  Transmission Date: 20141002
  Serious: Yes (Death, Hospitalization, Other)
  Sender: FDA-Public Use
  Company Number: DE-BAYER-2014-022702

PATIENT
  Age: 82 Year
  Sex: Female
  Weight: 70 kg

DRUGS (1)
  1. AVALOX [Suspect]
     Indication: TRACHEOBRONCHITIS
     Dosage: 400 MG,
     Dates: start: 20140204, end: 20140205

REACTIONS (2)
  - Liver function test abnormal [Fatal]
  - Hepatic failure [Fatal]
